FAERS Safety Report 10151862 (Version 7)
Quarter: 2016Q1

REPORT INFORMATION
  Report Type: Report from Study
  Country: BR (occurrence: BR)
  Receive Date: 20140505
  Receipt Date: 20160219
  Transmission Date: 20160525
  Serious: Yes (Hospitalization, Disabling, Other)
  Sender: FDA-Public Use
  Company Number: BR-ROCHE-1050636

PATIENT
  Sex: Male
  Weight: 85 kg

DRUGS (16)
  1. MABTHERA [Suspect]
     Active Substance: RITUXIMAB
     Route: 042
     Dates: start: 2010
  2. OMEPRAZOLE. [Concomitant]
     Active Substance: OMEPRAZOLE
     Indication: GASTRIC DISORDER
  3. SELOZOK [Concomitant]
     Active Substance: METOPROLOL SUCCINATE
     Indication: HYPERTENSION
  4. HYDROCHLOROTHIAZIDE. [Concomitant]
     Active Substance: HYDROCHLOROTHIAZIDE
  5. METICORTEN [Concomitant]
     Active Substance: PREDNISONE
     Indication: RHEUMATOID ARTHRITIS
  6. LOSARTAN POTASSIUM. [Concomitant]
     Active Substance: LOSARTAN POTASSIUM
     Indication: HYPERTENSION
  7. MABTHERA [Suspect]
     Active Substance: RITUXIMAB
     Indication: RHEUMATOID ARTHRITIS
     Dosage: DATE OF LATEST INFUSION ADMINISTERED : 15/APR/2014.
     Route: 042
     Dates: start: 20140404
  8. CHLOROQUINE. [Concomitant]
     Active Substance: CHLOROQUINE
     Route: 065
  9. ARADOIS H [Concomitant]
     Active Substance: HYDROCHLOROTHIAZIDE\LOSARTAN POTASSIUM
  10. HYDROXYCHLOROQUINE [Concomitant]
     Active Substance: HYDROXYCHLOROQUINE
     Indication: RHEUMATOID ARTHRITIS
  11. KETOPROFEN. [Concomitant]
     Active Substance: KETOPROFEN
     Indication: RHEUMATOID ARTHRITIS
  12. FLORINEF ACETATE [Concomitant]
     Active Substance: FLUDROCORTISONE ACETATE
  13. FOLIC ACID. [Concomitant]
     Active Substance: FOLIC ACID
     Route: 065
  14. RANITIDINE [Concomitant]
     Active Substance: RANITIDINE\RANITIDINE HYDROCHLORIDE
  15. ARAVA [Concomitant]
     Active Substance: LEFLUNOMIDE
     Route: 065
  16. PREDNISONE. [Concomitant]
     Active Substance: PREDNISONE
     Indication: RHEUMATOID ARTHRITIS

REACTIONS (28)
  - Syncope [Unknown]
  - Osteoarthritis [Unknown]
  - Dry mouth [Recovered/Resolved]
  - Vision blurred [Recovered/Resolved]
  - Fatigue [Unknown]
  - Dry mouth [Unknown]
  - Aphthous ulcer [Unknown]
  - Tongue disorder [Recovered/Resolved]
  - Blood sodium decreased [Unknown]
  - Pruritus [Recovered/Resolved]
  - Arthropathy [Unknown]
  - Dry throat [Recovered/Resolved]
  - Dysphagia [Recovered/Resolved]
  - Pituitary tumour benign [Unknown]
  - Pneumonia [Unknown]
  - Dizziness [Recovered/Resolved]
  - Skin abrasion [Not Recovered/Not Resolved]
  - Nausea [Recovered/Resolved]
  - Nasopharyngitis [Unknown]
  - Throat irritation [Recovered/Resolved]
  - Erythema [Recovered/Resolved]
  - Arrhythmia [Unknown]
  - Swollen tongue [Recovered/Resolved]
  - Head discomfort [Recovered/Resolved]
  - Ageusia [Recovered/Resolved]
  - Dysgeusia [Recovered/Resolved]
  - Prostatic disorder [Not Recovered/Not Resolved]
  - Influenza [Unknown]

NARRATIVE: CASE EVENT DATE: 2012
